FAERS Safety Report 6043707-5 (Version None)
Quarter: 2009Q1

REPORT INFORMATION
  Report Type: 
  Country: None (occurrence: None)
  Receive Date: 20090120
  Receipt Date: 20090107
  Transmission Date: 20090719
  Serious: Yes (Other)
  Sender: FDA-Public Use
  Company Number: PHEH2004US03635

PATIENT
  Sex: Female

DRUGS (8)
  1. AREDIA [Suspect]
     Indication: BREAST CANCER
     Dosage: 90 MG, QMO
     Route: 042
     Dates: start: 19990101, end: 20020101
  2. ZOMETA [Suspect]
     Indication: BREAST CANCER
     Dosage: 4 MG, QMO
     Route: 042
     Dates: start: 20020201, end: 20030501
  3. DARVOCET [Concomitant]
  4. VICODIN [Concomitant]
  5. PLAQUENIL [Concomitant]
  6. PREDNISONE [Concomitant]
  7. COREG [Concomitant]
  8. DONNATAL [Concomitant]

REACTIONS (4)
  - BONE DISORDER [None]
  - OSTEONECROSIS [None]
  - PAIN [None]
  - WOUND DRAINAGE [None]
